FAERS Safety Report 25200901 (Version 2)
Quarter: 2025Q2

REPORT INFORMATION
  Report Type: Spontaneous
  Country: US (occurrence: US)
  Receive Date: 20250415
  Receipt Date: 20250417
  Transmission Date: 20250717
  Serious: No
  Sender: SANDOZ
  Company Number: US-SANDOZ-SDZ2025US023185

PATIENT
  Sex: Female
  Weight: 52.15 kg

DRUGS (2)
  1. COMBIPATCH [Suspect]
     Active Substance: ESTRADIOL\NORETHINDRONE ACETATE
     Indication: Hormone replacement therapy
     Route: 062
     Dates: start: 2025
  2. COMBIPATCH [Suspect]
     Active Substance: ESTRADIOL\NORETHINDRONE ACETATE
     Indication: Menopause

REACTIONS (6)
  - Feeling abnormal [Not Recovered/Not Resolved]
  - Feeling jittery [Not Recovered/Not Resolved]
  - Stress [Not Recovered/Not Resolved]
  - Intentional product use issue [Not Recovered/Not Resolved]
  - Product physical issue [Not Recovered/Not Resolved]
  - Device breakage [Unknown]

NARRATIVE: CASE EVENT DATE: 20250101
